FAERS Safety Report 23339122 (Version 1)
Quarter: 2023Q4

REPORT INFORMATION
  Report Type: Spontaneous
  Country: US (occurrence: US)
  Receive Date: 20231226
  Receipt Date: 20231226
  Transmission Date: 20240110
  Serious: Yes (Other)
  Sender: FDA-Public Use
  Company Number: US-BRISTOL-MYERS SQUIBB COMPANY-2023-185040

PATIENT
  Age: 69 Year
  Sex: Female
  Weight: 71.1 kg

DRUGS (4)
  1. POMALYST [Suspect]
     Active Substance: POMALIDOMIDE
     Indication: Plasma cell myeloma
     Dosage: DOSE : 3 MG | 2 MG;     FREQ : ONE CAPSULE ONE TIME EACH DAY FOR 14 DAYS ON AND 7 DAYS OFF
     Route: 048
     Dates: start: 20230717
  2. POMALYST [Suspect]
     Active Substance: POMALIDOMIDE
     Dosage: DOSE : 3 MG | 2 MG;     FREQ : ONE CAPSULE ONE TIME EACH DAY FOR 14 DAYS ON AND 7 DAYS OFF
     Route: 048
     Dates: start: 202312
  3. KYPROLIS [Concomitant]
     Active Substance: CARFILZOMIB
     Indication: Plasma cell myeloma
  4. VITAMIN D NOS [Concomitant]
     Active Substance: VITAMIN D NOS
     Indication: Product used for unknown indication
     Dosage: 2000 UNIT

REACTIONS (2)
  - Plasma cell myeloma [Unknown]
  - Off label use [Unknown]
